FAERS Safety Report 8844163 (Version 2)
Quarter: 2013Q1

REPORT INFORMATION
  Report Type: Spontaneous
  Country: JP (occurrence: JP)
  Receive Date: 20121017
  Receipt Date: 20130124
  Transmission Date: 20140127
  Serious: Yes (Other)
  Sender: FDA-Public Use
  Company Number: JP-009507513-1206USA04426

PATIENT
  Age: 67 Year
  Sex: Female

DRUGS (5)
  1. FOSAPREPITANT DIMEGLUMINE [Suspect]
     Indication: PROPHYLAXIS OF NAUSEA AND VOMITING
     Dosage: 150 MG, QD
     Route: 041
     Dates: start: 20120220, end: 20120220
  2. ALOXI [Concomitant]
     Dates: start: 20120220, end: 20120220
  3. DECADRON (DEXAMETHASONE SODIUM PHOSPHATE) [Concomitant]
     Dates: start: 20120220, end: 20120220
  4. ENDOXAN [Concomitant]
     Dates: start: 20120220, end: 20120220
  5. FARMORUBICIN [Concomitant]
     Dates: start: 20120220, end: 20120220

REACTIONS (2)
  - Injection site erythema [Unknown]
  - Injection site swelling [Unknown]
